FAERS Safety Report 8604797-6 (Version None)
Quarter: 2012Q3

REPORT INFORMATION
  Report Type: 
  Country: None (occurrence: None)
  Receive Date: 20120820
  Receipt Date: 20120810
  Transmission Date: 20120928
  Serious: Yes (Hospitalization)
  Sender: FDA-Public Use
  Company Number: BR-ELI_LILLY_AND_COMPANY-BR201208003516

PATIENT
  Sex: Female
  Weight: 40 kg

DRUGS (7)
  1. PREDNISONE [Concomitant]
     Indication: RHEUMATOID ARTHRITIS
     Dosage: 5 MG, BID
     Route: 065
  2. OMEPRAZOLE [Concomitant]
     Indication: PROPHYLAXIS
     Dosage: 20 MG, QD
     Route: 065
  3. FOLIC ACID [Concomitant]
     Indication: ANAEMIA
     Dosage: 5 MG, QD
     Route: 065
  4. DOMPERIDON                         /00498201/ [Concomitant]
     Indication: GASTROOESOPHAGEAL REFLUX DISEASE
     Dosage: 10 MG, QD
     Route: 065
  5. METHOTREXATE SODIUM [Concomitant]
     Indication: RHEUMATOID ARTHRITIS
     Dosage: 50 MG, WEEKLY (1/W)
     Route: 065
  6. LOSARTAN POTASSIUM [Concomitant]
     Indication: HYPERTENSION
     Dosage: 100 MG, QD
     Route: 065
  7. FORTEO [Suspect]
     Indication: OSTEOPOROSIS
     Dosage: 20 UG, QD
     Route: 058
     Dates: start: 20101101

REACTIONS (4)
  - PAIN IN EXTREMITY [None]
  - NODULE [None]
  - FUNGAL INFECTION [None]
  - SPINAL PAIN [None]
